FAERS Safety Report 4550317-5 (Version None)
Quarter: 2005Q1

REPORT INFORMATION
  Report Type: 
  Country: None (occurrence: None)
  Receive Date: 20050111
  Receipt Date: 20050111
  Transmission Date: 20050727
  Serious: Yes (Hospitalization)
  Sender: FDA-Public Use
  Company Number: None

PATIENT
  Age: 70 Year
  Sex: Male
  Weight: 97.5234 kg

DRUGS (1)
  1. VIOXX [Suspect]
     Dosage: 12.5 MG TAB DAILY

REACTIONS (2)
  - ATRIAL FIBRILLATION [None]
  - BLINDNESS TRANSIENT [None]
